FAERS Safety Report 13630928 (Version 1)
Quarter: 2017Q2

REPORT INFORMATION
  Report Type: Other
  Country: SK (occurrence: SK)
  Receive Date: 20170608
  Receipt Date: 20170608
  Transmission Date: 20170830
  Serious: Yes (Death)
  Sender: FDA-Public Use
  Company Number: SK-GE HEALTHCARE LIFE SCIENCES-2017CSU001564

PATIENT

DRUGS (1)
  1. VISIPAQUE [Suspect]
     Active Substance: IODIXANOL
     Indication: INFECTION
     Dosage: 100 ML, SINGLE
     Route: 042
     Dates: start: 20170510, end: 20170510

REACTIONS (2)
  - Anaphylactic reaction [Fatal]
  - Angioedema [Fatal]

NARRATIVE: CASE EVENT DATE: 20170510
